FAERS Safety Report 6510701-7 (Version None)
Quarter: 2009Q4

REPORT INFORMATION
  Report Type: 
  Country: None (occurrence: None)
  Receive Date: 20091222
  Receipt Date: 20091021
  Transmission Date: 20100525
  Serious: No
  Sender: FDA-Public Use
  Company Number: US-ASTRAZENECA-2009SE21568

PATIENT
  Age: 20615 Day
  Sex: Male
  Weight: 83.9 kg

DRUGS (4)
  1. CRESTOR [Suspect]
     Route: 048
     Dates: start: 20090901
  2. PREVACID [Concomitant]
     Indication: GASTROOESOPHAGEAL REFLUX DISEASE
  3. DIGOXIN [Concomitant]
     Indication: ARRHYTHMIA
  4. SUPPLEMENTS [Concomitant]

REACTIONS (1)
  - SEXUAL DYSFUNCTION [None]
